FAERS Safety Report 13286747 (Version 1)
Quarter: 2017Q1

REPORT INFORMATION
  Report Type: Report from Study
  Country: US (occurrence: US)
  Receive Date: 20170302
  Receipt Date: 20170302
  Transmission Date: 20170428
  Serious: No
  Sender: FDA-Public Use
  Company Number: US-009507513-1702USA002432

PATIENT
  Age: 51 Year
  Sex: Male

DRUGS (5)
  1. HUMALOG [Concomitant]
     Active Substance: INSULIN LISPRO
     Dosage: UNK
  2. NOVOLIN [Concomitant]
     Active Substance: INSULIN HUMAN
  3. NOXAFIL [Suspect]
     Active Substance: POSACONAZOLE
     Indication: FUNGAL INFECTION
     Dosage: 300 MG DAILY
     Route: 048
     Dates: start: 201501
  4. LASIX [Concomitant]
     Active Substance: FUROSEMIDE
  5. NOXAFIL [Suspect]
     Active Substance: POSACONAZOLE
     Dosage: 200 MG DAILY
     Route: 048
     Dates: start: 201701, end: 201702

REACTIONS (3)
  - Respiration abnormal [Not Recovered/Not Resolved]
  - Snoring [Not Recovered/Not Resolved]
  - Product use issue [Unknown]

NARRATIVE: CASE EVENT DATE: 201701
